FAERS Safety Report 6885868-1 (Version None)
Quarter: 2010Q3

REPORT INFORMATION
  Report Type: 
  Country: None (occurrence: None)
  Receive Date: 20100729
  Receipt Date: 20080619
  Transmission Date: 20110219
  Serious: Yes (Other)
  Sender: FDA-Public Use
  Company Number: US-PFIZER INC-2008051563

PATIENT
  Sex: Male
  Weight: 88.5 kg

DRUGS (1)
  1. CELEBREX [Suspect]
     Indication: PLEURISY
     Route: 048
     Dates: start: 20080611

REACTIONS (7)
  - CHEST PAIN [None]
  - COLD SWEAT [None]
  - DIARRHOEA [None]
  - HEADACHE [None]
  - NAUSEA [None]
  - PARAESTHESIA [None]
  - SKIN BURNING SENSATION [None]
